FAERS Safety Report 12659080 (Version 1)
Quarter: 2016Q3

REPORT INFORMATION
  Report Type: Spontaneous
  Country: US (occurrence: None)
  Receive Date: 20160816
  Receipt Date: 20160816
  Transmission Date: 20161109
  Serious: Yes (Other)
  Sender: FDA-Public Use
  Company Number: None

PATIENT
  Age: 78 Year
  Sex: Female
  Weight: 90.72 kg

DRUGS (14)
  1. ZIAC [Concomitant]
     Active Substance: BISOPROLOL FUMARATE\HYDROCHLOROTHIAZIDE
  2. TYLENOL WITH CODEINE [Concomitant]
     Active Substance: ACETAMINOPHEN\CODEINE PHOSPHATE
  3. CA CITRATE [Concomitant]
  4. MULTI VIT 50+ [Concomitant]
  5. SINGULAIR [Concomitant]
     Active Substance: MONTELUKAST SODIUM
  6. PREDNISONE. [Concomitant]
     Active Substance: PREDNISONE
  7. CELECOXIB 200 MG CAP TRI A 136 WHITE CAPSULE [Suspect]
     Active Substance: CELECOXIB
     Indication: OSTEOARTHRITIS
     Route: 048
     Dates: start: 201601, end: 20160720
  8. AZATHIOPRINE. [Concomitant]
     Active Substance: AZATHIOPRINE
  9. CELEBREX [Concomitant]
     Active Substance: CELECOXIB
  10. ALVESCI [Concomitant]
  11. PROBIOTIC [Concomitant]
     Active Substance: PROBIOTICS NOS
  12. CETRIZINE [Concomitant]
     Active Substance: CETIRIZINE HYDROCHLORIDE
  13. PROAIR HFA [Concomitant]
     Active Substance: ALBUTEROL SULFATE
  14. O2 [Concomitant]

REACTIONS (4)
  - Arthralgia [None]
  - Product substitution issue [None]
  - Joint stiffness [None]
  - Joint swelling [None]

NARRATIVE: CASE EVENT DATE: 201606
